FAERS Safety Report 10957119 (Version 8)
Quarter: 2016Q1

REPORT INFORMATION
  Report Type: Spontaneous
  Country: US (occurrence: US)
  Receive Date: 20150326
  Receipt Date: 20160108
  Transmission Date: 20160525
  Serious: Yes (Hospitalization, Other)
  Sender: FDA-Public Use
  Company Number: US-PFIZER INC-2015102293

PATIENT
  Age: 75 Year
  Sex: Female
  Weight: 78 kg

DRUGS (45)
  1. LYRICA [Suspect]
     Active Substance: PREGABALIN
     Dosage: UNK
  2. ORENCIA [Concomitant]
     Active Substance: ABATACEPT
     Dosage: 750 MG, UNK
     Route: 042
     Dates: start: 20150225
  3. COLACE [Concomitant]
     Active Substance: DOCUSATE SODIUM
     Dosage: 100 MG, 1X/DAY
     Route: 048
  4. KADIAN [Concomitant]
     Active Substance: MORPHINE SULFATE
     Dosage: 60 MG, 2X/DAY
  5. NITRO-DUR [Concomitant]
     Active Substance: NITROGLYCERIN
     Dosage: 400 ?G, 2X/DAY (0.4 MG/HR 24 HR PATCH EVERY 12 HOURS)
  6. TRIAMCINOLONE ACETONIDE. [Concomitant]
     Active Substance: TRIAMCINOLONE ACETONIDE
     Dosage: 0.5 %, 2X/DAY
     Route: 061
     Dates: start: 20150909
  7. MORPHINE [Concomitant]
     Active Substance: MORPHINE
     Dosage: 60 MG, 2X/DAY (TAKE 1 TABLET EVERY 12 HOURS)
     Route: 048
     Dates: start: 20150929
  8. PREDNISONE. [Concomitant]
     Active Substance: PREDNISONE
     Dosage: 1 MG TABLET; TAKE 3 TABLET BY ORAL ROUTE ONCE
     Route: 048
     Dates: start: 20150810
  9. XANAX [Concomitant]
     Active Substance: ALPRAZOLAM
     Indication: NERVOUSNESS
     Dosage: 0.5 MG, (AT LEAST TWICE A DAY AS NEEDED)
  10. TRIAMCINOLONE ACETONIDE. [Concomitant]
     Active Substance: TRIAMCINOLONE ACETONIDE
     Dosage: 0.1 %, TOPICAL OINTMENT
     Route: 061
     Dates: start: 20141213, end: 20150909
  11. NITROGLYCER [Concomitant]
     Dosage: 1 DF, DAILY (APPLY  1PATCH DAILY TO SKIN AND FOR 10-12 HOURS AND REMOVE AT NIGHT DAILY)
     Dates: start: 20140814
  12. VALTREX [Concomitant]
     Active Substance: VALACYCLOVIR HYDROCHLORIDE
     Indication: HERPES VIRUS INFECTION
     Dosage: 500 MG, AS NEEDED (TAKE 2 TABS  BY MOUTH TWICE A  DAY FOR 3 DAYS AS  NEEDED)
     Dates: start: 20150521
  13. PROAIR HFA [Concomitant]
     Active Substance: ALBUTEROL SULFATE
     Dosage: 2 DF, AS NEEDED (INHALE 2 PUFF BY INHALATION ROUTE EVERY 4- 6 HOURS AS NEEDED)
     Dates: start: 20150406, end: 20150909
  14. PREDNISONE. [Concomitant]
     Active Substance: PREDNISONE
     Dosage: 5 MG, 1X/DAY
     Route: 048
     Dates: start: 20150810
  15. BIOTIN [Concomitant]
     Active Substance: BIOTIN
     Dosage: 1000 ?G, 1X/DAY
     Route: 048
  16. MILK THISTLE EXTRACT OR [Concomitant]
     Dosage: 2 DF, 2X/DAY
  17. PREMARIN [Concomitant]
     Active Substance: ESTROGENS, CONJUGATED
     Indication: ATROPHIC VULVOVAGINITIS
     Dosage: 1 G, UNK (0.625 MG/GM, 3 TIMES PER WEEK)
  18. AMLODIPINE [Concomitant]
     Active Substance: AMLODIPINE BESYLATE
     Dosage: 2.5 MG, 1X/DAY (1 TABLET EVERDAY)
     Route: 048
     Dates: start: 20150322
  19. NORCO [Concomitant]
     Active Substance: ACETAMINOPHEN\HYDROCODONE BITARTRATE
     Dosage: 10-325 MG PER TAB (TAKE 2 TABS)
     Route: 048
  20. XANAX [Concomitant]
     Active Substance: ALPRAZOLAM
     Indication: INSOMNIA
     Dosage: 0.5 MG, UNK (4 TIMES DAILY OR AS NEEDED)
  21. CYMBALTA [Concomitant]
     Active Substance: DULOXETINE HYDROCHLORIDE
     Dosage: 30 MG, UNK
     Dates: start: 20150322
  22. HYDROCODONE BITARTRATE AND ACETAMINOPHEN [Concomitant]
     Active Substance: ACETAMINOPHEN\HYDROCODONE BITARTRATE
     Indication: PAIN
     Dosage: (10/325MG, TAKE 1-2 TABLET 4 TIMES EVERDAY AS NEEDED)
     Route: 048
     Dates: start: 20150917
  23. ORENCIA [Concomitant]
     Active Substance: ABATACEPT
     Dosage: 250 UNK, (750 MG EVERY 4 WEEKS)
  24. MIRALAX [Concomitant]
     Active Substance: POLYETHYLENE GLYCOL 3350
     Dosage: 2 UNK, (2 TSPS)
     Route: 048
  25. LYRICA [Suspect]
     Active Substance: PREGABALIN
     Indication: FIBROMYALGIA
     Dosage: 50 MG, 2X/DAY
     Dates: start: 2014, end: 2014
  26. LYRICA [Suspect]
     Active Substance: PREGABALIN
     Indication: PAIN
     Dosage: 50 MG, 1X/DAY
     Route: 048
     Dates: start: 20150810, end: 20150909
  27. VICODIN [Concomitant]
     Active Substance: ACETAMINOPHEN\HYDROCODONE BITARTRATE
     Indication: RHEUMATOID ARTHRITIS
  28. VITAMIN D3 [Concomitant]
     Active Substance: CHOLECALCIFEROL
     Dosage: 4000 IU, UNK
     Dates: start: 20150521
  29. ALPRAZOLAM. [Concomitant]
     Active Substance: ALPRAZOLAM
     Indication: ANXIETY
     Dosage: 0.5 MG, AS NEEDED (3 TIMES EVERY DAY AS NEEDED)
     Route: 048
     Dates: start: 20150322
  30. VITAMIN D3 [Concomitant]
     Active Substance: CHOLECALCIFEROL
     Dosage: 1000 IU, 1X/DAY
  31. VICODIN [Concomitant]
     Active Substance: ACETAMINOPHEN\HYDROCODONE BITARTRATE
     Indication: PAIN
     Dosage: 10/325 MG, 2-3 TIMES A DAY, 4 TIMES A DAY IF HURTING REAL BAD FOR RHEUMATOID ARTHRITIS
  32. POLYETHYLENE GLYCOL [Concomitant]
     Active Substance: POLYETHYLENE GLYCOLS
     Dosage: 17 G, DAILY (TAKE (17G)  BY ORAL ROUTE EVERY DAY MIXED WITH 8 OZ. WATER, JUICE, SODA, COFFEE OR TEA)
     Route: 048
     Dates: start: 20141208
  33. OMEPRAZOLE. [Concomitant]
     Active Substance: OMEPRAZOLE
     Dosage: 40 MG, 1X/DAY (TAKE 1 CAPSULE BY ORAL ROUTE EVERY DAY BEFORE A MEAL)
     Route: 048
     Dates: start: 20150225
  34. NITROSTAT [Concomitant]
     Active Substance: NITROGLYCERIN
     Dosage: 0.4 MG, AS NEEDED (PLACE 1 TABLET UNDER TONGUE ONCE EVERY 5 MIN. AS NEEDED UP TO 3 EPISODES)
     Route: 060
     Dates: start: 20150401
  35. ESTRING [Concomitant]
     Active Substance: ESTRADIOL
     Dosage: 2 MG VAGINAL INSERT 1 VAGINAL RING  (EVERY 90 DAYS)
     Route: 067
     Dates: start: 20150727, end: 20150810
  36. ASPIRIN. [Concomitant]
     Active Substance: ASPIRIN
     Dosage: 81 MG, 1X/DAY
     Route: 048
  37. OXYBUTYNIN CHLORIDE. [Concomitant]
     Active Substance: OXYBUTYNIN CHLORIDE
     Indication: DYSURIA
     Dosage: 5 MG, 1X/DAY (1 TABLET BY ORAL ROUTE  EVERY BEDTIME)
     Route: 048
     Dates: start: 20150909
  38. OXYBUTYNIN CHLORIDE ER [Concomitant]
     Active Substance: OXYBUTYNIN CHLORIDE
     Dosage: 10 MG, 1X/DAY
     Dates: start: 20150909, end: 20150909
  39. KEFLEX [Concomitant]
     Active Substance: CEPHALEXIN
     Dosage: 250 MG, 3X/DAY (EVERY 8 HOURS)
     Dates: start: 20150917
  40. RESTASIS [Concomitant]
     Active Substance: CYCLOSPORINE
     Dosage: 1 GTT, 2X/DAY ( 0.05%, EVERY 12 HOUR)
     Route: 047
     Dates: start: 20131213
  41. EMLA [Concomitant]
     Active Substance: LIDOCAINE\PRILOCAINE
     Dosage: UNK (EVERY 5 HOURS)
     Dates: start: 20150813
  42. LIDOCAINE. [Concomitant]
     Active Substance: LIDOCAINE
     Dosage: 15 ML, UNK (EVERY 3 HOURS AND SWISH AND SPIT OUT)
     Route: 048
     Dates: start: 20150107, end: 20150909
  43. DITROPAN [Concomitant]
     Active Substance: OXYBUTYNIN CHLORIDE
     Dosage: 5 MG, 1X/DAY (AT BEDTIME)
     Route: 048
  44. RED YEAST RICE EXTRACT [Concomitant]
     Dosage: 1200 MG, 1X/DAY (600 MG, 2 CAPSULES DAILY)
     Route: 048
  45. ALDACTAZIDE [Concomitant]
     Active Substance: HYDROCHLOROTHIAZIDE\SPIRONOLACTONE
     Dosage: UNK, 4X/DAY (25-25 MG PER TAB)
     Route: 048

REACTIONS (25)
  - Vaginal cancer [Unknown]
  - Vulvar dysplasia [Unknown]
  - Fatigue [Unknown]
  - Dysuria [Unknown]
  - Vulval neoplasm [Unknown]
  - Drug ineffective [Unknown]
  - Malaise [Unknown]
  - Back pain [Unknown]
  - Drug intolerance [Unknown]
  - Arthralgia [Unknown]
  - Pain [Unknown]
  - Vulvovaginal pain [Unknown]
  - Vulval cancer [Unknown]
  - Vaginal haemorrhage [Unknown]
  - Dry mouth [Unknown]
  - Urinary incontinence [Unknown]
  - Body height decreased [Unknown]
  - Decreased appetite [Unknown]
  - Nausea [Unknown]
  - Insomnia [Unknown]
  - Chills [Unknown]
  - Pyrexia [Unknown]
  - Weight decreased [Unknown]
  - Proctalgia [Unknown]
  - Polymyalgia rheumatica [Unknown]

NARRATIVE: CASE EVENT DATE: 20140827
